APPROVED DRUG PRODUCT: HYDROCORTISONE ACETATE
Active Ingredient: HYDROCORTISONE ACETATE
Strength: 0.5%
Dosage Form/Route: OINTMENT;OPHTHALMIC
Application: A080828 | Product #001
Applicant: FERA PHARMACEUTICALS LLC
Approved: Approved Prior to Jan 1, 1982 | RLD: No | RS: No | Type: DISCN